FAERS Safety Report 9516282 (Version 1)
Quarter: 2013Q3

REPORT INFORMATION
  Report Type: Spontaneous
  Country: US (occurrence: US)
  Receive Date: 20130911
  Receipt Date: 20130911
  Transmission Date: 20140515
  Serious: Yes (Hospitalization, Other)
  Sender: FDA-Public Use
  Company Number: US-ASTRAZENECA-2013SE67113

PATIENT
  Age: 82 Year
  Sex: Female

DRUGS (10)
  1. ATENOLOL [Suspect]
     Route: 065
  2. METOPROLOL [Suspect]
     Route: 065
  3. ENALAPRIL [Suspect]
     Route: 065
  4. SUTENT [Concomitant]
  5. PLAVIX [Concomitant]
  6. ASPIRIN [Concomitant]
  7. ALEVE [Concomitant]
  8. DIGOXIN [Concomitant]
  9. ZETIA [Concomitant]
  10. TEKTURNA [Concomitant]

REACTIONS (6)
  - Urinary tract infection [Recovering/Resolving]
  - Dehydration [Recovering/Resolving]
  - Pericardial effusion [Unknown]
  - Blood pressure decreased [Unknown]
  - Asthenia [Unknown]
  - Hypersomnia [Unknown]
